FAERS Safety Report 25416709 (Version 5)
Quarter: 2025Q4

REPORT INFORMATION
  Report Type: Spontaneous
  Country: US (occurrence: US)
  Receive Date: 20250610
  Receipt Date: 20251002
  Transmission Date: 20260117
  Serious: Yes (Death, Hospitalization, Other)
  Sender: CSL BEHRING
  Company Number: US-BEH-2025208386

PATIENT
  Age: 50 Year
  Sex: Male

DRUGS (7)
  1. PRIVIGEN [Suspect]
     Active Substance: HUMAN IMMUNOGLOBULIN G
     Indication: IgG deficiency
     Dosage: 30 G, QOW
     Route: 042
     Dates: start: 202306
  2. PRIVIGEN [Suspect]
     Active Substance: HUMAN IMMUNOGLOBULIN G
     Dosage: 5 G, QOW
     Route: 042
     Dates: start: 202306
  3. PRIVIGEN [Suspect]
     Active Substance: HUMAN IMMUNOGLOBULIN G
     Dosage: 35 G, QOW
     Route: 042
     Dates: start: 202306
  4. HEPARIN SODIUM [Concomitant]
     Active Substance: HEPARIN SODIUM
  5. ACETAMINOPHEN [Concomitant]
     Active Substance: ACETAMINOPHEN
  6. EPINEPHRINE [Concomitant]
     Active Substance: EPINEPHRINE
  7. SODIUM CHLORIDE [Concomitant]
     Active Substance: SODIUM CHLORIDE

REACTIONS (4)
  - Death [Fatal]
  - Myocardial infarction [Unknown]
  - Mental status changes [Unknown]
  - Ascites [Unknown]

NARRATIVE: CASE EVENT DATE: 20250920
